FAERS Safety Report 5342881-3 (Version None)
Quarter: 2007Q2

REPORT INFORMATION
  Report Type: 
  Country: None (occurrence: None)
  Receive Date: 20070601
  Receipt Date: 20070517
  Transmission Date: 20071010
  Serious: Yes (Death, Hospitalization)
  Sender: FDA-Public Use
  Company Number: NL-GENENTECH-231840

PATIENT
  Sex: Male

DRUGS (9)
  1. BEVACIZUMAB [Suspect]
     Indication: COLORECTAL CANCER
     Dosage: 7.5 MG/KG, Q3W
     Route: 042
     Dates: start: 20060203
  2. CAPECITABINE [Suspect]
     Indication: COLORECTAL CANCER
     Dosage: 4600 MG, UNK
     Route: 048
     Dates: start: 20060203
  3. OXALIPLATIN [Suspect]
     Indication: COLORECTAL CANCER
     Dosage: 130 MG/M2, Q3W
     Route: 042
     Dates: start: 20060203
  4. PARACETAMOL [Concomitant]
     Indication: DRUG USE FOR UNKNOWN INDICATION
  5. OXAZEPAM [Concomitant]
     Indication: DRUG USE FOR UNKNOWN INDICATION
  6. METOPROLOL SUCCINATE [Concomitant]
     Indication: DRUG USE FOR UNKNOWN INDICATION
  7. LANOXIN [Concomitant]
     Indication: DRUG USE FOR UNKNOWN INDICATION
  8. EUTHYROX [Concomitant]
     Indication: DRUG USE FOR UNKNOWN INDICATION
  9. ASCAL [Concomitant]
     Indication: DRUG USE FOR UNKNOWN INDICATION

REACTIONS (1)
  - EPILEPSY [None]
